FAERS Safety Report 5711110-0 (Version None)
Quarter: 2008Q2

REPORT INFORMATION
  Report Type: 
  Country: None (occurrence: None)
  Receive Date: 20080415
  Receipt Date: 20080402
  Transmission Date: 20081010
  Serious: Yes (Death)
  Sender: FDA-Public Use
  Company Number: GXKR2008JP03247

PATIENT
  Age: 17 Month
  Sex: Male

DRUGS (3)
  1. CARBOPLATIN [Suspect]
     Indication: HEPATOBLASTOMA
     Dosage: INTRAHEPATIC ARTERIAL, INJECTION NOS
  2. CISPLATIN [Suspect]
     Indication: HEPATOBLASTOMA
     Dosage: EVERY 3-4 WEEKS
  3. PIRARUBICIN(PIRARUBICIN) [Suspect]
     Indication: HEPATOBLASTOMA
     Dosage: EVERY 3-4 WEEKS, INTRAHEPATIC ARTERIAL INJECTION NOS

REACTIONS (3)
  - ACUTE MYELOID LEUKAEMIA [None]
  - LEUKAEMIA RECURRENT [None]
  - STEM CELL TRANSPLANT [None]
